FAERS Safety Report 8198095-5 (Version None)
Quarter: 2012Q1

REPORT INFORMATION
  Report Type: 
  Country: None (occurrence: None)
  Receive Date: 20120309
  Receipt Date: 20120113
  Transmission Date: 20120608
  Serious: No
  Sender: FDA-Public Use
  Company Number: US-AMGEN-USASP2012002621

PATIENT
  Age: 58 Year
  Sex: Female

DRUGS (7)
  1. NEXIUM [Concomitant]
     Dosage: UNK
  2. CALCIUM WITH VITAMIN D [Concomitant]
     Dosage: UNK
  3. BYSTOLIC [Concomitant]
     Dosage: UNK
  4. VICODIN [Concomitant]
     Dosage: UNK
  5. PROLIA [Suspect]
     Indication: OSTEOPOROSIS POSTMENOPAUSAL
     Dosage: UNK UNK, Q6MO
     Dates: start: 20111214
  6. VITAMIN B COMPLEX CAP [Concomitant]
     Dosage: UNK
  7. LOVAZA [Concomitant]
     Dosage: UNK

REACTIONS (1)
  - BACK PAIN [None]
